FAERS Safety Report 23964354 (Version 1)
Quarter: 2024Q2

REPORT INFORMATION
  Report Type: Spontaneous
  Country: CN (occurrence: CN)
  Receive Date: 20240612
  Receipt Date: 20240612
  Transmission Date: 20240716
  Serious: Yes (Other)
  Sender: FDA-Public Use
  Company Number: CN-AMGEN-CHNSP2024114126

PATIENT

DRUGS (2)
  1. XGEVA [Suspect]
     Active Substance: DENOSUMAB
     Indication: Non-small cell lung cancer
     Dosage: 120 MILLIGRAM, EVERY 28 DAYS
     Route: 058
  2. XGEVA [Suspect]
     Active Substance: DENOSUMAB
     Indication: Metastases to bone

REACTIONS (9)
  - Pathological fracture [Unknown]
  - Hypercalcaemia [Unknown]
  - Radiotherapy to bone [Unknown]
  - Pyrexia [Unknown]
  - Hypoaesthesia [Unknown]
  - Toothache [Unknown]
  - Anaemia [Unknown]
  - Asthenia [Unknown]
  - Arthralgia [Unknown]
